FAERS Safety Report 5334095-8 (Version None)
Quarter: 2007Q2

REPORT INFORMATION
  Report Type: 
  Country: None (occurrence: None)
  Receive Date: 20070524
  Receipt Date: 20070510
  Transmission Date: 20071010
  Serious: Yes (Hospitalization)
  Sender: FDA-Public Use
  Company Number: FR-MERCK-0705FRA00041

PATIENT
  Age: 79 Year
  Sex: Male

DRUGS (2)
  1. PRIMAXIN [Suspect]
     Indication: ACINETOBACTER INFECTION
     Route: 042
     Dates: start: 20050401, end: 20050501
  2. AMIKACIN [Concomitant]
     Indication: ACINETOBACTER INFECTION
     Route: 042
     Dates: start: 20050401, end: 20050501

REACTIONS (2)
  - DRUG INEFFECTIVE [None]
  - MULTIPLE-DRUG RESISTANCE [None]
